FAERS Safety Report 6560930-1 (Version None)
Quarter: 2010Q1

REPORT INFORMATION
  Report Type: 
  Country: None (occurrence: None)
  Receive Date: 20100129
  Receipt Date: 20090929
  Transmission Date: 20100710
  Serious: No
  Sender: FDA-Public Use
  Company Number: US-ABBOTT-09P-163-0600381-00

PATIENT
  Sex: Female
  Weight: 90.8 kg

DRUGS (6)
  1. HUMIRA [Suspect]
     Indication: PSORIATIC ARTHROPATHY
     Route: 058
     Dates: start: 20071101
  2. INSULIN [Concomitant]
     Indication: DIABETES MELLITUS
     Route: 058
  3. METFORMIN [Concomitant]
     Indication: DIABETES MELLITUS
  4. AMARYL [Concomitant]
     Indication: DIABETES MELLITUS
  5. LEVOTHYROXINE SODIUM [Concomitant]
     Indication: HYPOTHYROIDISM
  6. TOPICAL CREAMS [Concomitant]
     Indication: PSORIASIS

REACTIONS (4)
  - ARTHRALGIA [None]
  - ERYTHEMA [None]
  - JOINT SWELLING [None]
  - WHITE BLOOD CELL COUNT INCREASED [None]
